FAERS Safety Report 24543981 (Version 1)
Quarter: 2024Q4

REPORT INFORMATION
  Report Type: Spontaneous
  Country: EE (occurrence: EE)
  Receive Date: 20241024
  Receipt Date: 20241024
  Transmission Date: 20250114
  Serious: Yes (Life-Threatening, Hospitalization, Other)
  Sender: TEVA
  Company Number: None

PATIENT
  Age: 65 Year
  Sex: Female

DRUGS (3)
  1. CYCLOSPORINE [Suspect]
     Active Substance: CYCLOSPORINE
     Indication: Cystitis
     Route: 048
     Dates: start: 20240124, end: 20240923
  2. AMITRIPTYLINE [Concomitant]
     Active Substance: AMITRIPTYLINE
     Indication: Product used for unknown indication
  3. OLMESARTAN MEDOXOMIL [Concomitant]
     Active Substance: OLMESARTAN MEDOXOMIL
     Indication: Product used for unknown indication

REACTIONS (3)
  - Pancreatitis acute [Recovering/Resolving]
  - Shock [Recovering/Resolving]
  - Multiple organ dysfunction syndrome [Recovering/Resolving]

NARRATIVE: CASE EVENT DATE: 20240921
